FAERS Safety Report 10146492 (Version 1)
Quarter: 2014Q2

REPORT INFORMATION
  Report Type: Spontaneous
  Country: US (occurrence: None)
  Receive Date: 20140429
  Receipt Date: 20140429
  Transmission Date: 20141212
  Serious: Yes (Other)
  Sender: FDA-Public Use
  Company Number: 2014P1003314

PATIENT
  Age: 63 Year
  Sex: Male

DRUGS (3)
  1. VANCOMYCIN [Suspect]
     Indication: CRYPTOCOCCOSIS
     Route: 048
  2. VANCOMYCIN [Suspect]
     Indication: COLITIS
     Route: 048
  3. NUMEROUS MEDICATIONS [Concomitant]

REACTIONS (5)
  - Rash [None]
  - Burning sensation [None]
  - Papule [None]
  - Skin oedema [None]
  - Dermatitis bullous [None]
